FAERS Safety Report 6332269-0 (Version None)
Quarter: 2009Q3

REPORT INFORMATION
  Report Type: 
  Country: None (occurrence: None)
  Receive Date: 20090828
  Receipt Date: 20090818
  Transmission Date: 20100115
  Serious: Yes (Hospitalization, Other)
  Sender: FDA-Public Use
  Company Number: US-PFIZER INC-2009258081

PATIENT
  Sex: Female
  Weight: 79.365 kg

DRUGS (6)
  1. XANAX [Suspect]
     Indication: ANXIETY
     Dosage: 0.5 MG, 3X/DAY
     Dates: start: 19850101
  2. ALPRAZOLAM [Suspect]
     Indication: ANXIETY
     Dosage: 0.5 MG, 3X/DAY
  3. RISPERDAL [Concomitant]
     Dosage: 0.25 MG, 1X/DAY
  4. REMERON [Concomitant]
     Dosage: 45 MG, 1X/DAY
  5. LITHIUM CITRATE [Concomitant]
     Dosage: 300 MG, 1X/DAY
  6. AMBIEN [Concomitant]

REACTIONS (3)
  - HEADACHE [None]
  - NAUSEA [None]
  - THYROID CANCER [None]
